FAERS Safety Report 5806751-6 (Version None)
Quarter: 2008Q3

REPORT INFORMATION
  Report Type: 
  Country: None (occurrence: None)
  Receive Date: 20080709
  Receipt Date: 20080709
  Transmission Date: 20090109
  Serious: No
  Sender: FDA-Public Use
  Company Number: None

PATIENT
  Age: 58 Year
  Sex: Female
  Weight: 75.7507 kg

DRUGS (1)
  1. HYDROXYZINE PAM CAPS 50MG WATSON [Suspect]
     Indication: DRUG THERAPY CHANGED
     Dosage: BY MOUTH 3 TIMES A DAY HAS BEEN TAKING HYDROXYZINE FOR OVER 15 YEARS
     Route: 048

REACTIONS (1)
  - CONVULSION [None]
